FAERS Safety Report 23430283 (Version 8)
Quarter: 2025Q4

REPORT INFORMATION
  Report Type: Spontaneous
  Country: CA (occurrence: CA)
  Receive Date: 20240123
  Receipt Date: 20251028
  Transmission Date: 20260118
  Serious: Yes (Death, Life-Threatening, Hospitalization, Disabling, Congenital Anomaly, Other)
  Sender: Haleon PLC
  Company Number: CA-002147023-NVSC2024CA009468

PATIENT
  Age: 40 Year
  Sex: Female
  Weight: 96 kg

DRUGS (572)
  1. VOLTAREN [Suspect]
     Active Substance: DICLOFENAC SODIUM
     Indication: Product used for unknown indication
     Dosage: 50 MG PATIENT ROA: UNKNOWN
  2. VOLTAREN [Suspect]
     Active Substance: DICLOFENAC SODIUM
     Dosage: UNK SUBCUTANEOUS USE
  3. VOLTAREN [Suspect]
     Active Substance: DICLOFENAC SODIUM
     Dosage: UNK PATIENT ROA: UNKNOWN
  4. VOLTAREN [Suspect]
     Active Substance: DICLOFENAC SODIUM
     Dosage: UNK PATIENT ROA: UNKNOWN
  5. VOLTAREN [Suspect]
     Active Substance: DICLOFENAC SODIUM
     Indication: Product used for unknown indication
     Dosage: UNK, PATIENT ROA: UNKNOWN
  6. VOLTAREN [Suspect]
     Active Substance: DICLOFENAC SODIUM
     Dosage: UNK PATIENT ROA: UNKNOWN
  7. VOLTAREN [Suspect]
     Active Substance: DICLOFENAC SODIUM
     Dosage: 50 MG
  8. ERELZI [Suspect]
     Active Substance: ETANERCEPT-SZZS
     Indication: Rheumatoid arthritis
     Dosage: UNK
     Route: 058
  9. ERELZI [Suspect]
     Active Substance: ETANERCEPT-SZZS
     Dosage: ROUTE: UNKNOWN
  10. ERELZI [Suspect]
     Active Substance: ETANERCEPT-SZZS
     Dosage: ROUTE: UNKNOWN
  11. ERELZI [Suspect]
     Active Substance: ETANERCEPT-SZZS
     Dosage: UNK, ROUTE: UNKNOWN
  12. ERELZI [Suspect]
     Active Substance: ETANERCEPT-SZZS
  13. ERELZI [Suspect]
     Active Substance: ETANERCEPT-SZZS
     Dosage: UNK
     Route: 058
  14. ERELZI [Suspect]
     Active Substance: ETANERCEPT-SZZS
     Dosage: UNK
  15. ERELZI [Suspect]
     Active Substance: ETANERCEPT-SZZS
     Dosage: UNK
  16. COSENTYX [Suspect]
     Active Substance: SECUKINUMAB
     Indication: Rheumatoid arthritis
     Dosage: ROUTE: UNKNOWN
  17. COSENTYX [Suspect]
     Active Substance: SECUKINUMAB
     Indication: Psoriatic arthropathy
  18. ERENUMAB [Suspect]
     Active Substance: ERENUMAB
     Indication: Migraine
     Dosage: DOSE FORM: SOLUTION FOR INJECTION
  19. ERENUMAB [Suspect]
     Active Substance: ERENUMAB
  20. ERENUMAB [Suspect]
     Active Substance: ERENUMAB
  21. TOPIRAMATE [Suspect]
     Active Substance: TOPIRAMATE
     Indication: Migraine
     Dosage: 3 MG, QD PATIENT ROA: UNKNOWN
  22. TOPIRAMATE [Suspect]
     Active Substance: TOPIRAMATE
     Dosage: 25 MG, QD PATIENT ROA: UNKNOWN
  23. TOPIRAMATE [Suspect]
     Active Substance: TOPIRAMATE
     Dosage: 25 MG, QD PATIENT ROA: UNKNOWN
  24. ALENDRONATE SODIUM [Suspect]
     Active Substance: ALENDRONATE SODIUM
     Indication: Rheumatoid arthritis
     Dosage: UNK
     Route: 048
  25. ALENDRONATE SODIUM [Suspect]
     Active Substance: ALENDRONATE SODIUM
     Dosage: UNK
  26. ALENDRONATE SODIUM [Suspect]
     Active Substance: ALENDRONATE SODIUM
     Dosage: UNK
  27. ALENDRONATE SODIUM [Suspect]
     Active Substance: ALENDRONATE SODIUM
     Dosage: UNK, ROA: INTRACARDIAC
     Route: 016
  28. ALENDRONATE SODIUM [Suspect]
     Active Substance: ALENDRONATE SODIUM
     Dosage: ROA: INTRACARDIAC USE
  29. ALENDRONATE SODIUM [Suspect]
     Active Substance: ALENDRONATE SODIUM
     Dosage: UNK
     Route: 048
  30. ALENDRONATE SODIUM [Suspect]
     Active Substance: ALENDRONATE SODIUM
     Dosage: UNK
     Route: 048
  31. ALENDRONATE SODIUM [Suspect]
     Active Substance: ALENDRONATE SODIUM
     Dosage: UNK
  32. ALENDRONATE SODIUM [Suspect]
     Active Substance: ALENDRONATE SODIUM
     Dosage: UNK
     Route: 048
  33. ALENDRONATE SODIUM [Suspect]
     Active Substance: ALENDRONATE SODIUM
     Dosage: UNK
  34. ALENDRONATE SODIUM [Suspect]
     Active Substance: ALENDRONATE SODIUM
     Dosage: UNK
  35. ALENDRONATE SODIUM [Suspect]
     Active Substance: ALENDRONATE SODIUM
     Dosage: UNK
     Route: 048
  36. LEFLUNOMIDE [Suspect]
     Active Substance: LEFLUNOMIDE
     Indication: Rheumatoid arthritis
     Dosage: 10 MG, QD PATIENT ROA: UNKNOWN
  37. LEFLUNOMIDE [Suspect]
     Active Substance: LEFLUNOMIDE
     Dosage: 20 MG, QD PATIENT ROA: UNKNOWN
  38. LEFLUNOMIDE [Suspect]
     Active Substance: LEFLUNOMIDE
     Dosage: 10 MG, QD ORAL
     Route: 048
  39. LEFLUNOMIDE [Suspect]
     Active Substance: LEFLUNOMIDE
     Dosage: UNK
  40. LEFLUNOMIDE [Suspect]
     Active Substance: LEFLUNOMIDE
     Dosage: UNK
  41. LEFLUNOMIDE [Suspect]
     Active Substance: LEFLUNOMIDE
     Dosage: 20 MG PATIENT ROA: UNKNOWN
  42. LEFLUNOMIDE [Suspect]
     Active Substance: LEFLUNOMIDE
     Dosage: UNK PATIENT ROA: UNKNOWN
  43. LEFLUNOMIDE [Suspect]
     Active Substance: LEFLUNOMIDE
     Dosage: UNK
  44. LEFLUNOMIDE [Suspect]
     Active Substance: LEFLUNOMIDE
     Dosage: UNK ORAL
     Route: 048
  45. CELECOXIB [Suspect]
     Active Substance: CELECOXIB
     Indication: Product used for unknown indication
     Dosage: 1 DOSAGE FORM, QD
  46. CELECOXIB [Suspect]
     Active Substance: CELECOXIB
     Dosage: 2 DOSAGE FORM, QD
     Route: 048
  47. ADALIMUMAB [Suspect]
     Active Substance: ADALIMUMAB
     Indication: Rheumatoid arthritis
     Route: 058
  48. ADALIMUMAB [Suspect]
     Active Substance: ADALIMUMAB
     Dosage: UNK
     Route: 058
  49. ADALIMUMAB [Suspect]
     Active Substance: ADALIMUMAB
     Dosage: UNK
     Route: 058
  50. ADALIMUMAB [Suspect]
     Active Substance: ADALIMUMAB
     Dosage: 40 MG PATIENT ROA: UNKNOWN
  51. LEFLUNOMIDE [Suspect]
     Active Substance: LEFLUNOMIDE
     Indication: Rheumatoid arthritis
     Dosage: 20 MILLIGRAM, QD
  52. LEFLUNOMIDE [Suspect]
     Active Substance: LEFLUNOMIDE
     Dosage: 10 MILLIGRAM, QD
  53. LEFLUNOMIDE [Suspect]
     Active Substance: LEFLUNOMIDE
     Dosage: 10 MILLIGRAM, QD
  54. LEFLUNOMIDE [Suspect]
     Active Substance: LEFLUNOMIDE
     Dosage: 20 MILLIGRAM
  55. LEFLUNOMIDE [Suspect]
     Active Substance: LEFLUNOMIDE
     Dosage: UNK
  56. LEFLUNOMIDE [Suspect]
     Active Substance: LEFLUNOMIDE
     Dosage: UNK
  57. LEFLUNOMIDE [Suspect]
     Active Substance: LEFLUNOMIDE
     Dosage: UNK
     Route: 048
  58. LEFLUNOMIDE [Suspect]
     Active Substance: LEFLUNOMIDE
     Dosage: UNK
  59. LEFLUNOMIDE [Suspect]
     Active Substance: LEFLUNOMIDE
     Dosage: UNK
     Route: 048
  60. LEFLUNOMIDE [Suspect]
     Active Substance: LEFLUNOMIDE
     Dosage: UNK
  61. LEFLUNOMIDE [Suspect]
     Active Substance: LEFLUNOMIDE
     Dosage: UNK
  62. LEFLUNOMIDE [Suspect]
     Active Substance: LEFLUNOMIDE
     Dosage: UNK
  63. LEFLUNOMIDE [Suspect]
     Active Substance: LEFLUNOMIDE
     Dosage: 10 MILLIGRAM, QD
     Route: 048
  64. OXYCODONE [Suspect]
     Active Substance: OXYCODONE
     Indication: Product used for unknown indication
     Dosage: UNK, ROUTE: UNK
  65. OXYCODONE [Suspect]
     Active Substance: OXYCODONE
     Dosage: ROUTE: UNK
  66. AIMOVIG [Suspect]
     Active Substance: ERENUMAB-AOOE
     Indication: Migraine
     Dosage: UNK, ROUTE: UNKNOWN
  67. AIMOVIG [Suspect]
     Active Substance: ERENUMAB-AOOE
     Dosage: UNK UNKNOWN
  68. AIMOVIG [Suspect]
     Active Substance: ERENUMAB-AOOE
     Dosage: UNK, ROUTE: UNKNOWN
  69. AIMOVIG [Suspect]
     Active Substance: ERENUMAB-AOOE
     Dosage: UNK, ROUTE: UNKNOWN
  70. AIMOVIG [Suspect]
     Active Substance: ERENUMAB-AOOE
     Dosage: UNK, ROUTE: UNKNOWN
  71. AIMOVIG [Suspect]
     Active Substance: ERENUMAB-AOOE
     Dosage: ROUTE: UNKNOWN
  72. DICLOFENAC SODIUM [Suspect]
     Active Substance: DICLOFENAC SODIUM
     Indication: Product used for unknown indication
     Dosage: UNK
  73. DICLOFENAC SODIUM [Suspect]
     Active Substance: DICLOFENAC SODIUM
     Dosage: UNK PATIENT ROA: UNKNOWN
  74. DICLOFENAC SODIUM [Suspect]
     Active Substance: DICLOFENAC SODIUM
     Dosage: 50 MG PATIENT ROA: UNKNOWN
  75. DICLOFENAC SODIUM [Suspect]
     Active Substance: DICLOFENAC SODIUM
     Dosage: UNK
  76. DICLOFENAC SODIUM [Suspect]
     Active Substance: DICLOFENAC SODIUM
     Dosage: UNK SUBCUTANEOUS USE
  77. DICLOFENAC SODIUM [Suspect]
     Active Substance: DICLOFENAC SODIUM
     Dosage: UNK
     Route: 050
  78. DICLOFENAC SODIUM [Suspect]
     Active Substance: DICLOFENAC SODIUM
     Dosage: 50 MG
  79. DICLOFENAC SODIUM [Suspect]
     Active Substance: DICLOFENAC SODIUM
     Dosage: UNK, (SUBCUTANEOUS USE)
     Route: 050
  80. Desogestrel; Ethinylestradiol [Concomitant]
     Indication: Product used for unknown indication
     Dosage: UNK
  81. CANDESARTAN [Suspect]
     Active Substance: CANDESARTAN
     Indication: Migraine
     Dosage: UNK
     Route: 048
  82. CANDESARTAN [Suspect]
     Active Substance: CANDESARTAN
     Dosage: UNK
     Route: 048
  83. CANDESARTAN [Suspect]
     Active Substance: CANDESARTAN
     Dosage: UNK
  84. CANDESARTAN [Suspect]
     Active Substance: CANDESARTAN
     Dosage: UNK
  85. CANDESARTAN [Suspect]
     Active Substance: CANDESARTAN
  86. CANDESARTAN [Suspect]
     Active Substance: CANDESARTAN
  87. CANDESARTAN [Suspect]
     Active Substance: CANDESARTAN
  88. CANDESARTAN [Suspect]
     Active Substance: CANDESARTAN
     Dosage: UNK
  89. CANDESARTAN [Suspect]
     Active Substance: CANDESARTAN
     Dosage: UNK
  90. COSENTYX [Suspect]
     Active Substance: SECUKINUMAB
     Indication: Psoriatic arthropathy
     Dosage: UNK
  91. COSENTYX [Suspect]
     Active Substance: SECUKINUMAB
     Indication: Rheumatoid arthritis
     Dosage: UNK, ROUTE: UNKNOWN
  92. COSENTYX [Suspect]
     Active Substance: SECUKINUMAB
     Dosage: UNK, ROUTE: UNKNOWN
  93. COSENTYX [Suspect]
     Active Substance: SECUKINUMAB
     Dosage: UNK PATIENT ROA: UNKNOWN
  94. COSENTYX [Suspect]
     Active Substance: SECUKINUMAB
     Dosage: UNK
  95. DICLOFENAC SODIUM [Suspect]
     Active Substance: DICLOFENAC SODIUM
     Indication: Product used for unknown indication
     Dosage: 50 MG PATIENT ROA: UNKNOWN
  96. DICLOFENAC SODIUM [Suspect]
     Active Substance: DICLOFENAC SODIUM
     Dosage: UNK
     Route: 058
  97. DICLOFENAC SODIUM [Suspect]
     Active Substance: DICLOFENAC SODIUM
     Dosage: UNK
  98. DICLOFENAC SODIUM [Suspect]
     Active Substance: DICLOFENAC SODIUM
     Dosage: UNK
     Route: 058
  99. DICLOFENAC SODIUM [Suspect]
     Active Substance: DICLOFENAC SODIUM
     Dosage: UNK
  100. DICLOFENAC SODIUM [Suspect]
     Active Substance: DICLOFENAC SODIUM
     Dosage: UNK
  101. DICLOFENAC SODIUM [Suspect]
     Active Substance: DICLOFENAC SODIUM
     Dosage: UNK
  102. DICLOFENAC SODIUM [Suspect]
     Active Substance: DICLOFENAC SODIUM
     Dosage: UNK
  103. DICLOFENAC SODIUM [Suspect]
     Active Substance: DICLOFENAC SODIUM
     Dosage: UNK
  104. DICLOFENAC SODIUM [Suspect]
     Active Substance: DICLOFENAC SODIUM
     Dosage: UNK, (SUBCUTANEOUS USE)
     Route: 058
  105. DICLOFENAC SODIUM [Suspect]
     Active Substance: DICLOFENAC SODIUM
     Dosage: UNK
     Route: 050
  106. DICLOFENAC SODIUM [Suspect]
     Active Substance: DICLOFENAC SODIUM
     Dosage: UNK
  107. METHOTREXATE [Suspect]
     Active Substance: METHOTREXATE
     Indication: Rheumatoid arthritis
     Dosage: UNK ORAL USE
  108. METHOTREXATE [Suspect]
     Active Substance: METHOTREXATE
     Dosage: UNK
     Route: 058
  109. METHOTREXATE [Suspect]
     Active Substance: METHOTREXATE
     Dosage: UNK
     Route: 050
  110. METHOTREXATE [Suspect]
     Active Substance: METHOTREXATE
     Dosage: UNK INTRACARDIAC USE
  111. METHOTREXATE [Suspect]
     Active Substance: METHOTREXATE
     Dosage: ROA: INTRACARDIAC USE
     Route: 016
  112. METHOTREXATE [Suspect]
     Active Substance: METHOTREXATE
     Dosage: UNK
  113. METHOTREXATE [Suspect]
     Active Substance: METHOTREXATE
     Dosage: 25 MG, QW ORAL, ROA: INTRAARTERIAL USE
  114. METHOTREXATE [Suspect]
     Active Substance: METHOTREXATE
     Dosage: UNK SUBCUTANEOUS USE
     Route: 058
  115. METHOTREXATE [Suspect]
     Active Substance: METHOTREXATE
     Route: 058
  116. METHOTREXATE [Suspect]
     Active Substance: METHOTREXATE
     Route: 048
  117. METHOTREXATE [Suspect]
     Active Substance: METHOTREXATE
     Dosage: UNK
  118. METHOTREXATE [Suspect]
     Active Substance: METHOTREXATE
     Dosage: 1 MG ORAL
     Route: 048
  119. METHOTREXATE [Suspect]
     Active Substance: METHOTREXATE
     Dosage: 25 MG INTRAARTERIAL USE
  120. METHOTREXATE [Suspect]
     Active Substance: METHOTREXATE
     Dosage: 25 MG, QW ORAL
     Route: 048
  121. METHOTREXATE [Suspect]
     Active Substance: METHOTREXATE
     Dosage: UNK ORAL
  122. METHOTREXATE [Suspect]
     Active Substance: METHOTREXATE
     Dosage: UNK
  123. METHOTREXATE [Suspect]
     Active Substance: METHOTREXATE
     Dosage: 25 MG, QW, INTRAARTERIAL
  124. METHOTREXATE [Suspect]
     Active Substance: METHOTREXATE
     Dosage: 25 MG, QW ORAL
     Route: 048
  125. METHOTREXATE [Suspect]
     Active Substance: METHOTREXATE
     Dosage: 15 MG, QW SUBCUTANEOUS
     Route: 058
  126. METHOTREXATE [Suspect]
     Active Substance: METHOTREXATE
     Dosage: 225 MG UNKNOWN
  127. METHOTREXATE [Suspect]
     Active Substance: METHOTREXATE
     Dosage: 20 MG, QD ORAL
     Route: 048
  128. METHOTREXATE [Suspect]
     Active Substance: METHOTREXATE
     Dosage: 25 MG UNKNOWN
  129. METHOTREXATE [Suspect]
     Active Substance: METHOTREXATE
     Dosage: 25 MG, QW, INTRAARTERIAL USE PATIENT ROA: ORAL USE
     Route: 048
  130. METHOTREXATE [Suspect]
     Active Substance: METHOTREXATE
     Dosage: 25 MG, QW, INTRAARTERIAL USE PATIENT ROA: ORAL USE
     Route: 050
  131. METHOTREXATE [Suspect]
     Active Substance: METHOTREXATE
     Dosage: 50 MG, QD ORAL
     Route: 050
  132. METHOTREXATE [Suspect]
     Active Substance: METHOTREXATE
     Dosage: UNK
  133. METHOTREXATE [Suspect]
     Active Substance: METHOTREXATE
     Dosage: 40 MG ORAL
     Route: 050
  134. METHOTREXATE [Suspect]
     Active Substance: METHOTREXATE
     Dosage: 25 MG, QD ORAL
     Route: 048
  135. METHOTREXATE [Suspect]
     Active Substance: METHOTREXATE
     Dosage: 150 MG, QW SUBCUTANEOUS
     Route: 058
  136. METHOTREXATE [Suspect]
     Active Substance: METHOTREXATE
     Dosage: UNK
  137. METHOTREXATE [Suspect]
     Active Substance: METHOTREXATE
     Dosage: UNK
  138. METHOTREXATE [Suspect]
     Active Substance: METHOTREXATE
     Dosage: 25 MG
  139. RITUXAN [Suspect]
     Active Substance: RITUXIMAB
     Indication: Rheumatoid arthritis
     Dosage: 365 MG, QD PATIENT ROA: UNKNOWN
  140. RITUXAN [Suspect]
     Active Substance: RITUXIMAB
     Dosage: 2000 MG, QD PATIENT ROA: UNKNOWN
  141. RITUXAN [Suspect]
     Active Substance: RITUXIMAB
     Dosage: UNK, DOSE FORM: SUBCUTANEOUS USE
  142. RITUXAN [Suspect]
     Active Substance: RITUXIMAB
     Dosage: UNK PATIENT ROA: INTRACARDIAC USE
  143. RITUXAN [Suspect]
     Active Substance: RITUXIMAB
     Dosage: UNK, ROA: INTRAVESICAL USE
  144. RITUXAN [Suspect]
     Active Substance: RITUXIMAB
     Dosage: UNK PATIENT ROA: INTRACARDIAC USE
  145. RITUXAN [Suspect]
     Active Substance: RITUXIMAB
     Dosage: UNK, ROA: INTRACARDIAC USE
  146. RITUXAN [Suspect]
     Active Substance: RITUXIMAB
     Dosage: UNK PATIENT ROA: INTRAVESICAL USE
  147. RITUXAN [Suspect]
     Active Substance: RITUXIMAB
     Dosage: UNK, ROA: INTRAVENOUS BOLUS
  148. RITUXAN [Suspect]
     Active Substance: RITUXIMAB
     Dosage: UNK
  149. RITUXAN [Suspect]
     Active Substance: RITUXIMAB
     Dosage: UNK DOSE FORM: SUBCUTANEOUS USE
  150. RITUXAN [Suspect]
     Active Substance: RITUXIMAB
     Dosage: UNK, ROA: INTRACARDIAC USE
  151. RITUXAN [Suspect]
     Active Substance: RITUXIMAB
     Dosage: UNK PATIENT ROA: INTRAVESICAL
  152. RITUXAN [Suspect]
     Active Substance: RITUXIMAB
     Dosage: UNK, QD , INTRAVENOUS USE
  153. RITUXAN [Suspect]
     Active Substance: RITUXIMAB
     Dosage: UNK PATIENT ROA: INTRACARDIAC USE
  154. RITUXAN [Suspect]
     Active Substance: RITUXIMAB
     Dosage: UNK, INTRACARDIAC USE
  155. RITUXAN [Suspect]
     Active Substance: RITUXIMAB
     Dosage: UNK
  156. RITUXAN [Suspect]
     Active Substance: RITUXIMAB
     Dosage: 2000 MG, QD PATIENT ROA: INTRAVENOUS USE
  157. RITUXAN [Suspect]
     Active Substance: RITUXIMAB
     Dosage: 2 G, QD, INTRAVENOUS BOLUS
  158. RITUXAN [Suspect]
     Active Substance: RITUXIMAB
     Dosage: 2000 MG, QD
  159. RITUXAN [Suspect]
     Active Substance: RITUXIMAB
     Dosage: UNK INTRACARDIAC USE
  160. RITUXAN [Suspect]
     Active Substance: RITUXIMAB
     Dosage: UNK INTRACARDIAC USE
  161. RITUXAN [Suspect]
     Active Substance: RITUXIMAB
     Dosage: UNK SUBCUTANEOUS USE
  162. RITUXAN [Suspect]
     Active Substance: RITUXIMAB
     Dosage: 2000 MG, QD
  163. RITUXAN [Suspect]
     Active Substance: RITUXIMAB
     Dosage: UNK
  164. RITUXAN [Suspect]
     Active Substance: RITUXIMAB
     Dosage: UNK INTRAVENOUS BOLUS
  165. RITUXAN [Suspect]
     Active Substance: RITUXIMAB
     Dosage: UNK, DOSE FORM: SUBCUTANEOUS USE
  166. RITUXAN [Suspect]
     Active Substance: RITUXIMAB
     Dosage: UNK INTRACARDIAC
  167. RITUXAN [Suspect]
     Active Substance: RITUXIMAB
     Dosage: 2000 MG, QD, INTRAVENOUS BOLUS
  168. RITUXAN [Suspect]
     Active Substance: RITUXIMAB
     Dosage: UNK
  169. RITUXAN [Suspect]
     Active Substance: RITUXIMAB
     Dosage: UNK, INTRACARDIAC USE
  170. RITUXAN [Suspect]
     Active Substance: RITUXIMAB
     Dosage: UNK SUBCUTANEOUS
  171. RITUXAN [Suspect]
     Active Substance: RITUXIMAB
     Dosage: 2000 MG, QD
  172. RITUXAN [Suspect]
     Active Substance: RITUXIMAB
     Dosage: UNK
  173. RITUXAN [Suspect]
     Active Substance: RITUXIMAB
     Dosage: 2 G, QD, INTRAVENOUS BOLUS
  174. RITUXAN [Suspect]
     Active Substance: RITUXIMAB
     Dosage: UNK
  175. RITUXAN [Suspect]
     Active Substance: RITUXIMAB
     Dosage: UNK UNK, QD, INTRAVENOUS BOLUS
  176. RITUXAN [Suspect]
     Active Substance: RITUXIMAB
     Dosage: UNK
  177. RITUXAN [Suspect]
     Active Substance: RITUXIMAB
     Dosage: 2000 MG, QD, INTRAVENOUS BOLUS PATIENT ROA: UNKNOWN
  178. RITUXAN [Suspect]
     Active Substance: RITUXIMAB
     Dosage: UNK
  179. RITUXAN [Suspect]
     Active Substance: RITUXIMAB
     Dosage: UNK
  180. RITUXAN [Suspect]
     Active Substance: RITUXIMAB
     Dosage: 2000 MG, QD INTRAVENOUS BOLUS
  181. RITUXAN [Suspect]
     Active Substance: RITUXIMAB
     Dosage: UNK UNK, QD
  182. RITUXAN [Suspect]
     Active Substance: RITUXIMAB
     Dosage: UNK
  183. RITUXAN [Suspect]
     Active Substance: RITUXIMAB
     Dosage: UNK, SUBCUTANEOUS USE
  184. RITUXAN [Suspect]
     Active Substance: RITUXIMAB
     Dosage: UNK
  185. RITUXAN [Suspect]
     Active Substance: RITUXIMAB
     Dosage: UNK, ROA: INTRAVESICAL USE
  186. RITUXAN [Suspect]
     Active Substance: RITUXIMAB
     Dosage: UNK, INTRAVENOUS BOLUS
  187. RITUXAN [Suspect]
     Active Substance: RITUXIMAB
     Dosage: 2 G, QD INTRAVENOUS USE
  188. RITUXAN [Suspect]
     Active Substance: RITUXIMAB
     Dosage: UNK
  189. RITUXAN [Suspect]
     Active Substance: RITUXIMAB
     Dosage: UNK, QD, INTRAVENOUS BOLUS
  190. RITUXAN [Suspect]
     Active Substance: RITUXIMAB
     Dosage: UNK SUBCUTANEOUS
  191. RITUXAN [Suspect]
     Active Substance: RITUXIMAB
     Dosage: 365 MG, QD
  192. RITUXAN [Suspect]
     Active Substance: RITUXIMAB
     Dosage: UNK
  193. NAPROXEN [Concomitant]
     Active Substance: NAPROXEN
     Indication: Product used for unknown indication
     Dosage: 500 MG, QD
  194. NAPROXEN [Concomitant]
     Active Substance: NAPROXEN
  195. NAPROXEN [Concomitant]
     Active Substance: NAPROXEN
     Dosage: 500 MG, QD PATIENT ROA: UNKNOWN
  196. ERELZI [Suspect]
     Active Substance: ETANERCEPT-SZZS
     Indication: Rheumatoid arthritis
     Dosage: UNK
  197. ERELZI [Suspect]
     Active Substance: ETANERCEPT-SZZS
     Dosage: UNK
     Route: 058
  198. ERELZI [Suspect]
     Active Substance: ETANERCEPT-SZZS
     Dosage: UNK
  199. ERELZI [Suspect]
     Active Substance: ETANERCEPT-SZZS
     Dosage: UNK
     Route: 058
  200. ERELZI [Suspect]
     Active Substance: ETANERCEPT-SZZS
     Dosage: UNK
  201. ERELZI [Suspect]
     Active Substance: ETANERCEPT-SZZS
     Dosage: UNK
  202. ERELZI [Suspect]
     Active Substance: ETANERCEPT-SZZS
     Dosage: UNK
  203. ERELZI [Suspect]
     Active Substance: ETANERCEPT-SZZS
     Dosage: UNK
  204. ERELZI [Suspect]
     Active Substance: ETANERCEPT-SZZS
     Dosage: UNK
  205. CHOLECALCIFEROL [Suspect]
     Active Substance: CHOLECALCIFEROL
     Indication: Product used for unknown indication
     Dosage: UNK
  206. CHOLECALCIFEROL [Suspect]
     Active Substance: CHOLECALCIFEROL
  207. ACETAMINOPHEN [Suspect]
     Active Substance: ACETAMINOPHEN
     Indication: Product used for unknown indication
     Dosage: UNK PATIENT ROA: UNKNOWN
  208. ACETAMINOPHEN [Suspect]
     Active Substance: ACETAMINOPHEN
     Indication: Rheumatoid arthritis
  209. ACETAMINOPHEN [Suspect]
     Active Substance: ACETAMINOPHEN
     Dosage: UNK PATIENT ROA: UNKNOWN
  210. ACETAMINOPHEN [Suspect]
     Active Substance: ACETAMINOPHEN
  211. ACETAMINOPHEN [Suspect]
     Active Substance: ACETAMINOPHEN
     Dosage: 20 MG PATIENT ROA: UNKNOWN
  212. ACETAMINOPHEN [Suspect]
     Active Substance: ACETAMINOPHEN
     Dosage: UNK PATIENT ROA: UNKNOWN
  213. ACETAMINOPHEN [Suspect]
     Active Substance: ACETAMINOPHEN
  214. ACETAMINOPHEN [Suspect]
     Active Substance: ACETAMINOPHEN
  215. ACETAMINOPHEN [Suspect]
     Active Substance: ACETAMINOPHEN
     Dosage: 20 MG PATIENT ROA: UNKNOWN
  216. ACETAMINOPHEN [Suspect]
     Active Substance: ACETAMINOPHEN
     Dosage: UNK
  217. ACETAMINOPHEN [Suspect]
     Active Substance: ACETAMINOPHEN
     Dosage: UNK
  218. ACETAMINOPHEN [Suspect]
     Active Substance: ACETAMINOPHEN
     Dosage: UNK
  219. ACETAMINOPHEN [Suspect]
     Active Substance: ACETAMINOPHEN
     Dosage: UNK
  220. ACTEMRA [Suspect]
     Active Substance: TOCILIZUMAB
     Indication: Rheumatoid arthritis
     Dosage: 728 MG UNKNOWN
  221. ACTEMRA [Suspect]
     Active Substance: TOCILIZUMAB
     Dosage: UNK (TOPICAL)
  222. ACTEMRA [Suspect]
     Active Substance: TOCILIZUMAB
     Dosage: 8 MG/KG UNKNOWN
  223. ACTEMRA [Suspect]
     Active Substance: TOCILIZUMAB
     Dosage: 162 MG SUBCUTANEOUS
     Route: 050
  224. ACTEMRA [Suspect]
     Active Substance: TOCILIZUMAB
     Dosage: 25 MG, QW SUBCUTANEOUS
     Route: 058
  225. ACTEMRA [Suspect]
     Active Substance: TOCILIZUMAB
     Dosage: 752.8 MG SUBCUTANEOUS
     Route: 050
  226. ACTEMRA [Suspect]
     Active Substance: TOCILIZUMAB
     Dosage: 20 MG UNKNOWN
  227. ACTEMRA [Suspect]
     Active Substance: TOCILIZUMAB
     Dosage: 728 MG SUBCUTANEOUS USE
     Route: 050
  228. ACTEMRA [Suspect]
     Active Substance: TOCILIZUMAB
     Dosage: 2912 MG UNKNOWN
  229. ACTEMRA [Suspect]
     Active Substance: TOCILIZUMAB
     Dosage: 8 MG UNKNOWN
  230. ACTEMRA [Suspect]
     Active Substance: TOCILIZUMAB
     Dosage: 20 MG
  231. ACTEMRA [Suspect]
     Active Substance: TOCILIZUMAB
  232. ACTEMRA [Suspect]
     Active Substance: TOCILIZUMAB
     Dosage: 8 MG/KG SUBCUTANEOUS
     Route: 058
  233. ACTEMRA [Suspect]
     Active Substance: TOCILIZUMAB
     Dosage: 3011.2 MG UNKNOWN
  234. ACTEMRA [Suspect]
     Active Substance: TOCILIZUMAB
     Dosage: UNK (TOPICAL)
  235. ACTEMRA [Suspect]
     Active Substance: TOCILIZUMAB
     Dosage: 752.8 MG
  236. ACTEMRA [Suspect]
     Active Substance: TOCILIZUMAB
     Dosage: UNK INTRACARDIAC
  237. ACTEMRA [Suspect]
     Active Substance: TOCILIZUMAB
     Dosage: UNK (TOPICAL) OTHER
  238. ACTEMRA [Suspect]
     Active Substance: TOCILIZUMAB
     Dosage: 752.8 MILLIGRAM
     Route: 050
  239. ACTEMRA [Suspect]
     Active Substance: TOCILIZUMAB
     Dosage: UNK SUBCUTANEOUS
  240. ACTEMRA [Suspect]
     Active Substance: TOCILIZUMAB
     Dosage: 8 MILLIGRAM
  241. ACTEMRA [Suspect]
     Active Substance: TOCILIZUMAB
     Dosage: 162 MG
     Route: 050
  242. ACTEMRA [Suspect]
     Active Substance: TOCILIZUMAB
     Dosage: 2912 MILLIGRAM
  243. ACTEMRA [Suspect]
     Active Substance: TOCILIZUMAB
     Dosage: UNK, ROA: INTRACARDIAC USE
  244. ACTEMRA [Suspect]
     Active Substance: TOCILIZUMAB
     Dosage: 752.8 MG
     Route: 050
  245. ACTEMRA [Suspect]
     Active Substance: TOCILIZUMAB
     Dosage: 3011.2 MILLIGRAM
  246. ACTEMRA [Suspect]
     Active Substance: TOCILIZUMAB
     Dosage: UNK
  247. ALENDRONIC ACID [Suspect]
     Active Substance: ALENDRONIC ACID
     Indication: Rheumatoid arthritis
     Dosage: UNK
     Route: 048
  248. ALENDRONIC ACID [Suspect]
     Active Substance: ALENDRONIC ACID
     Dosage: UNK, ROA: INTRACARDIAC USE
  249. ALENDRONIC ACID [Suspect]
     Active Substance: ALENDRONIC ACID
  250. ALENDRONIC ACID [Suspect]
     Active Substance: ALENDRONIC ACID
     Dosage: UNK
     Route: 048
  251. ALENDRONIC ACID [Suspect]
     Active Substance: ALENDRONIC ACID
     Dosage: UNK
  252. ALENDRONIC ACID [Suspect]
     Active Substance: ALENDRONIC ACID
  253. ALENDRONIC ACID [Suspect]
     Active Substance: ALENDRONIC ACID
     Dosage: UNK
  254. ALENDRONIC ACID [Suspect]
     Active Substance: ALENDRONIC ACID
  255. ALENDRONIC ACID [Suspect]
     Active Substance: ALENDRONIC ACID
  256. ALENDRONIC ACID [Suspect]
     Active Substance: ALENDRONIC ACID
  257. ALENDRONIC ACID [Suspect]
     Active Substance: ALENDRONIC ACID
     Dosage: UNK
  258. ALENDRONIC ACID [Suspect]
     Active Substance: ALENDRONIC ACID
     Dosage: UNK
  259. ALENDRONIC ACID [Suspect]
     Active Substance: ALENDRONIC ACID
     Dosage: UNK
  260. ALENDRONIC ACID [Suspect]
     Active Substance: ALENDRONIC ACID
     Dosage: UNK
  261. ALENDRONIC ACID [Suspect]
     Active Substance: ALENDRONIC ACID
     Dosage: UNK
  262. ALENDRONIC ACID [Suspect]
     Active Substance: ALENDRONIC ACID
     Dosage: UNK
  263. LEFLUNOMIDE [Suspect]
     Active Substance: LEFLUNOMIDE
     Indication: Rheumatoid arthritis
     Dosage: 10 MG ORAL
  264. LEFLUNOMIDE [Suspect]
     Active Substance: LEFLUNOMIDE
     Dosage: 20 MG PATIENT ROA: UNKNOWN
  265. LEFLUNOMIDE [Suspect]
     Active Substance: LEFLUNOMIDE
     Dosage: 10 MILLIGRAM
     Route: 048
  266. LEFLUNOMIDE [Suspect]
     Active Substance: LEFLUNOMIDE
  267. LEFLUNOMIDE [Suspect]
     Active Substance: LEFLUNOMIDE
  268. LEFLUNOMIDE [Suspect]
     Active Substance: LEFLUNOMIDE
  269. LEFLUNOMIDE [Suspect]
     Active Substance: LEFLUNOMIDE
  270. LEFLUNOMIDE [Suspect]
     Active Substance: LEFLUNOMIDE
  271. LEFLUNOMIDE [Suspect]
     Active Substance: LEFLUNOMIDE
  272. LEFLUNOMIDE [Suspect]
     Active Substance: LEFLUNOMIDE
     Dosage: 20 MG
  273. LEFLUNOMIDE [Suspect]
     Active Substance: LEFLUNOMIDE
  274. LEFLUNOMIDE [Suspect]
     Active Substance: LEFLUNOMIDE
  275. LEFLUNOMIDE [Suspect]
     Active Substance: LEFLUNOMIDE
     Dosage: 10 MG
  276. LEFLUNOMIDE [Suspect]
     Active Substance: LEFLUNOMIDE
  277. PREDNISONE [Suspect]
     Active Substance: PREDNISONE
     Indication: Rheumatoid arthritis
     Dosage: 5 MG ORAL USE
     Route: 048
  278. PREDNISONE [Suspect]
     Active Substance: PREDNISONE
     Dosage: UNK
  279. PREDNISONE [Suspect]
     Active Substance: PREDNISONE
     Dosage: UNK ORAL USE
  280. PREDNISONE [Suspect]
     Active Substance: PREDNISONE
     Dosage: UNK
  281. PREDNISONE [Suspect]
     Active Substance: PREDNISONE
     Dosage: UNK UNKNOWN
  282. PREDNISONE [Suspect]
     Active Substance: PREDNISONE
     Dosage: 1 MG
  283. PREDNISONE [Suspect]
     Active Substance: PREDNISONE
  284. PREDNISONE [Suspect]
     Active Substance: PREDNISONE
  285. PREDNISONE [Suspect]
     Active Substance: PREDNISONE
     Dosage: 40 MG UNKNOWN
  286. PREDNISONE [Suspect]
     Active Substance: PREDNISONE
     Dosage: 5 MILLIGRAM
  287. PREDNISONE [Suspect]
     Active Substance: PREDNISONE
     Dosage: UNK
  288. PREDNISONE [Suspect]
     Active Substance: PREDNISONE
     Dosage: 20 MG, QD
     Route: 050
  289. PREDNISONE [Suspect]
     Active Substance: PREDNISONE
     Dosage: UNK
  290. PREDNISONE [Suspect]
     Active Substance: PREDNISONE
     Dosage: UNK
  291. PREDNISONE [Suspect]
     Active Substance: PREDNISONE
     Dosage: UNK
  292. PREDNISONE [Suspect]
     Active Substance: PREDNISONE
     Dosage: UNK
  293. PREDNISONE [Suspect]
     Active Substance: PREDNISONE
     Dosage: 40 MG
  294. PREDNISONE [Suspect]
     Active Substance: PREDNISONE
     Dosage: 5 MILLIGRAM, QD
     Route: 050
  295. APREMILAST [Suspect]
     Active Substance: APREMILAST
     Indication: Rheumatoid arthritis
     Dosage: UNK
  296. APREMILAST [Suspect]
     Active Substance: APREMILAST
  297. APREMILAST [Suspect]
     Active Substance: APREMILAST
     Dosage: UNK
  298. APREMILAST [Suspect]
     Active Substance: APREMILAST
  299. APREMILAST [Suspect]
     Active Substance: APREMILAST
     Dosage: 6 MG, QD UNKNOWN
  300. ARAVA [Suspect]
     Active Substance: LEFLUNOMIDE
     Indication: Rheumatoid arthritis
     Dosage: UNK
  301. ARAVA [Suspect]
     Active Substance: LEFLUNOMIDE
     Dosage: UNK PATIENT ROA: UNKNOWN
  302. ARAVA [Suspect]
     Active Substance: LEFLUNOMIDE
     Dosage: UNK
     Route: 050
  303. ARAVA [Suspect]
     Active Substance: LEFLUNOMIDE
     Dosage: UNK
     Route: 048
  304. ARAVA [Suspect]
     Active Substance: LEFLUNOMIDE
     Dosage: 20 MG, QD
     Route: 048
  305. ARAVA [Suspect]
     Active Substance: LEFLUNOMIDE
     Dosage: UNK PATIENT ROA: UNKNOWN
  306. ARAVA [Suspect]
     Active Substance: LEFLUNOMIDE
     Dosage: UNK
  307. ARAVA [Suspect]
     Active Substance: LEFLUNOMIDE
  308. ARAVA [Suspect]
     Active Substance: LEFLUNOMIDE
     Dosage: 20 MG
     Route: 048
  309. ARAVA [Suspect]
     Active Substance: LEFLUNOMIDE
     Dosage: 20 MG
     Route: 048
  310. ARAVA [Suspect]
     Active Substance: LEFLUNOMIDE
     Dosage: UNK
  311. ARAVA [Suspect]
     Active Substance: LEFLUNOMIDE
     Dosage: UNK
  312. ARAVA [Suspect]
     Active Substance: LEFLUNOMIDE
     Dosage: UNK
  313. AZATHIOPRINE SODIUM [Suspect]
     Active Substance: AZATHIOPRINE SODIUM
     Indication: Product used for unknown indication
     Dosage: UNK
  314. AZATHIOPRINE SODIUM [Suspect]
     Active Substance: AZATHIOPRINE SODIUM
     Dosage: UNK UNKNOWN
  315. BERINERT [Suspect]
     Active Substance: HUMAN C1-ESTERASE INHIBITOR
     Indication: Product used for unknown indication
     Dosage: UNK
  316. BERINERT [Suspect]
     Active Substance: HUMAN C1-ESTERASE INHIBITOR
     Dosage: UNK
  317. BOTULINUM TOXIN TYPE A [Suspect]
     Active Substance: BOTULINUM TOXIN TYPE A
     Indication: Product used for unknown indication
     Dosage: UNK (POWDER FOR SOLUTION)
  318. BOTULINUM TOXIN TYPE A [Suspect]
     Active Substance: BOTULINUM TOXIN TYPE A
  319. BUTRANS [Suspect]
     Active Substance: BUPRENORPHINE
     Indication: Product used for unknown indication
     Dosage: UNK, DOSE FORM: PATCH
  320. BUTRANS [Suspect]
     Active Substance: BUPRENORPHINE
  321. CELEBREX [Suspect]
     Active Substance: CELECOXIB
     Indication: Product used for unknown indication
     Dosage: 1 DOSAGE FORM, QD
  322. CELEBREX [Suspect]
     Active Substance: CELECOXIB
     Dosage: 2 DOSAGE FORM, QD
     Route: 048
  323. CERTOLIZUMAB PEGOL [Suspect]
     Active Substance: CERTOLIZUMAB PEGOL
     Indication: Product used for unknown indication
     Dosage: 200 MG SUBCUTANEOUS
     Route: 050
  324. CERTOLIZUMAB PEGOL [Suspect]
     Active Substance: CERTOLIZUMAB PEGOL
     Dosage: UNK
  325. CERTOLIZUMAB PEGOL [Suspect]
     Active Substance: CERTOLIZUMAB PEGOL
     Dosage: UNK SUBCUTANEOUS USE
  326. CERTOLIZUMAB PEGOL [Suspect]
     Active Substance: CERTOLIZUMAB PEGOL
     Dosage: UNK
  327. CERTOLIZUMAB PEGOL [Suspect]
     Active Substance: CERTOLIZUMAB PEGOL
     Dosage: UNK SUBCUTANEOUS
  328. CERTOLIZUMAB PEGOL [Suspect]
     Active Substance: CERTOLIZUMAB PEGOL
     Dosage: 200 MG SUBCUTANEOUS USE
     Route: 050
  329. CERTOLIZUMAB PEGOL [Suspect]
     Active Substance: CERTOLIZUMAB PEGOL
     Dosage: UNK
  330. CERTOLIZUMAB PEGOL [Suspect]
     Active Substance: CERTOLIZUMAB PEGOL
     Dosage: UNK PATIENT ROA: UNKNOWN
  331. CERTOLIZUMAB PEGOL [Suspect]
     Active Substance: CERTOLIZUMAB PEGOL
     Dosage: UNK
  332. CERTOLIZUMAB PEGOL [Suspect]
     Active Substance: CERTOLIZUMAB PEGOL
  333. CERTOLIZUMAB PEGOL [Suspect]
     Active Substance: CERTOLIZUMAB PEGOL
     Dosage: UNK
  334. CERTOLIZUMAB PEGOL [Suspect]
     Active Substance: CERTOLIZUMAB PEGOL
     Dosage: UNK PATIENT ROA: UNKNOWN
  335. CERTOLIZUMAB PEGOL [Suspect]
     Active Substance: CERTOLIZUMAB PEGOL
     Dosage: UNK
     Route: 050
  336. CERTOLIZUMAB PEGOL [Suspect]
     Active Substance: CERTOLIZUMAB PEGOL
     Dosage: UNK
  337. DESOXIMETASONE [Suspect]
     Active Substance: DESOXIMETASONE
     Indication: Rheumatoid arthritis
     Dosage: UNK SUBCUTANEOUS USE
  338. DESOXIMETASONE [Suspect]
     Active Substance: DESOXIMETASONE
     Dosage: UNK
     Route: 050
  339. DESOXIMETASONE [Suspect]
     Active Substance: DESOXIMETASONE
  340. DESOXIMETASONE [Suspect]
     Active Substance: DESOXIMETASONE
     Dosage: 25 MG UNKNOWN
  341. DESOXIMETASONE [Suspect]
     Active Substance: DESOXIMETASONE
     Dosage: 25 MG
     Route: 050
  342. DESOXIMETASONE [Suspect]
     Active Substance: DESOXIMETASONE
     Dosage: UNK UNKNOWN
  343. DESOXIMETASONE [Suspect]
     Active Substance: DESOXIMETASONE
     Dosage: UNK SUBCUTANEOUS
  344. DESOXIMETASONE [Suspect]
     Active Substance: DESOXIMETASONE
     Dosage: UNK
  345. DESOXIMETASONE [Suspect]
     Active Substance: DESOXIMETASONE
     Dosage: UNK
     Route: 050
  346. DESOXIMETASONE [Suspect]
     Active Substance: DESOXIMETASONE
  347. DESOXIMETASONE [Suspect]
     Active Substance: DESOXIMETASONE
     Dosage: UNK
     Route: 050
  348. DESOXIMETASONE [Suspect]
     Active Substance: DESOXIMETASONE
     Dosage: UNK
  349. DESOXIMETASONE [Suspect]
     Active Substance: DESOXIMETASONE
     Dosage: UNK
  350. DESOXIMETASONE [Suspect]
     Active Substance: DESOXIMETASONE
     Dosage: UNK
  351. DOMPERIDONE MALEATE [Suspect]
     Active Substance: DOMPERIDONE MALEATE
     Indication: Product used for unknown indication
     Dosage: UNK
  352. DOMPERIDONE MALEATE [Suspect]
     Active Substance: DOMPERIDONE MALEATE
     Dosage: UNK
  353. ENBREL [Suspect]
     Active Substance: ETANERCEPT
     Indication: Rheumatoid arthritis
     Dosage: 10 MG, QW PATIENT ROA: UNKNOWN
  354. ENBREL [Suspect]
     Active Substance: ETANERCEPT
     Dosage: 40 MG SUBCUTANEOUS
     Route: 050
  355. ENBREL [Suspect]
     Active Substance: ETANERCEPT
     Dosage: UNK SUBCUTANEOUS
  356. ENBREL [Suspect]
     Active Substance: ETANERCEPT
  357. ENBREL [Suspect]
     Active Substance: ETANERCEPT
     Dosage: UNK
     Route: 050
  358. ENBREL [Suspect]
     Active Substance: ETANERCEPT
     Dosage: UNK SUBCUTANEOUS USE
  359. ENBREL [Suspect]
     Active Substance: ETANERCEPT
     Dosage: UNK
  360. ENBREL [Suspect]
     Active Substance: ETANERCEPT
     Dosage: UNK SUBCUTANEOUS
  361. ENBREL [Suspect]
     Active Substance: ETANERCEPT
     Dosage: UNK SUBCUTANEOUS USE
  362. ENBREL [Suspect]
     Active Substance: ETANERCEPT
  363. ENBREL [Suspect]
     Active Substance: ETANERCEPT
     Dosage: UNK SUBCUTANEOUS USE
  364. ENBREL [Suspect]
     Active Substance: ETANERCEPT
     Dosage: UNK SUBCUTANEOUS
  365. ENBREL [Suspect]
     Active Substance: ETANERCEPT
  366. ENBREL [Suspect]
     Active Substance: ETANERCEPT
     Dosage: UNK SUBCUTANEOUS
  367. ENBREL [Suspect]
     Active Substance: ETANERCEPT
  368. ENBREL [Suspect]
     Active Substance: ETANERCEPT
     Dosage: UNK SUBCUTANEOUS
  369. ENBREL [Suspect]
     Active Substance: ETANERCEPT
  370. ENBREL [Suspect]
     Active Substance: ETANERCEPT
     Dosage: 50 MG SUBCUTANEOUS
     Route: 050
  371. ENBREL [Suspect]
     Active Substance: ETANERCEPT
  372. ENBREL [Suspect]
     Active Substance: ETANERCEPT
  373. ENBREL [Suspect]
     Active Substance: ETANERCEPT
  374. ENBREL [Suspect]
     Active Substance: ETANERCEPT
     Dosage: 50 MG, QW SUBCUTANEOUS
     Route: 050
  375. ENBREL [Suspect]
     Active Substance: ETANERCEPT
     Dosage: 50 MG SUBCUTANEOUS
     Route: 050
  376. ENBREL [Suspect]
     Active Substance: ETANERCEPT
  377. ENBREL [Suspect]
     Active Substance: ETANERCEPT
  378. ENBREL [Suspect]
     Active Substance: ETANERCEPT
     Dosage: UNK
  379. ENBREL [Suspect]
     Active Substance: ETANERCEPT
     Dosage: UNK
  380. ENBREL [Suspect]
     Active Substance: ETANERCEPT
     Dosage: UNK SUBCUTANEOUS
  381. ENBREL [Suspect]
     Active Substance: ETANERCEPT
     Dosage: UNK
  382. ENBREL [Suspect]
     Active Substance: ETANERCEPT
     Dosage: UNK SUBCUTANEOUS USE
  383. ENBREL [Suspect]
     Active Substance: ETANERCEPT
     Dosage: UNK
  384. ENBREL [Suspect]
     Active Substance: ETANERCEPT
     Dosage: UNK
     Route: 050
  385. ENBREL [Suspect]
     Active Substance: ETANERCEPT
     Dosage: UNK PATIENT ROA: UNKNOWN
  386. ENBREL [Suspect]
     Active Substance: ETANERCEPT
     Dosage: UNK
  387. FLUMETHASONE [Suspect]
     Active Substance: FLUMETHASONE
     Indication: Product used for unknown indication
     Dosage: UNK
  388. FLUMETHASONE [Suspect]
     Active Substance: FLUMETHASONE
     Dosage: UNK PATIENT ROA: UNKNOWN
  389. FLUMETHASONE [Suspect]
     Active Substance: FLUMETHASONE
     Dosage: UNK
  390. FLUMETHASONE PIVALATE [Suspect]
     Active Substance: FLUMETHASONE PIVALATE
     Indication: Product used for unknown indication
  391. FLUMETHASONE PIVALATE [Suspect]
     Active Substance: FLUMETHASONE PIVALATE
     Dosage: UNK
     Route: 058
  392. FLUMETHASONE PIVALATE [Suspect]
     Active Substance: FLUMETHASONE PIVALATE
     Dosage: UNK
  393. FLUMETHASONE PIVALATE [Suspect]
     Active Substance: FLUMETHASONE PIVALATE
     Dosage: UNK
  394. FOLIC ACID [Suspect]
     Active Substance: FOLIC ACID
     Indication: Rheumatoid arthritis
     Dosage: 500 MG
     Route: 048
  395. FOLIC ACID [Suspect]
     Active Substance: FOLIC ACID
     Dosage: 50 MG
  396. FOLIC ACID [Suspect]
     Active Substance: FOLIC ACID
     Dosage: 15 MG
  397. FOLIC ACID [Suspect]
     Active Substance: FOLIC ACID
     Dosage: 25 MG
     Route: 048
  398. FOLIC ACID [Suspect]
     Active Substance: FOLIC ACID
     Dosage: 0.5 MG
     Route: 048
  399. FOLIC ACID [Suspect]
     Active Substance: FOLIC ACID
  400. FOLIC ACID [Suspect]
     Active Substance: FOLIC ACID
     Dosage: 0.5 MG
  401. FOLIC ACID [Suspect]
     Active Substance: FOLIC ACID
     Dosage: 15 MG
     Route: 048
  402. FOLIC ACID [Suspect]
     Active Substance: FOLIC ACID
     Dosage: 1 MG
     Route: 058
  403. FOLIC ACID [Suspect]
     Active Substance: FOLIC ACID
     Dosage: 500 MG
  404. FOLIC ACID [Suspect]
     Active Substance: FOLIC ACID
     Dosage: 5 MG
  405. FOLIC ACID [Suspect]
     Active Substance: FOLIC ACID
     Dosage: 1 MG
  406. FOLIC ACID [Suspect]
     Active Substance: FOLIC ACID
     Dosage: 25 MG
  407. FOLIC ACID [Suspect]
     Active Substance: FOLIC ACID
     Dosage: 5 MG
  408. FOLIC ACID [Suspect]
     Active Substance: FOLIC ACID
     Dosage: UNK
  409. FOSAMAX [Suspect]
     Active Substance: ALENDRONATE SODIUM
     Indication: Rheumatoid arthritis
     Dosage: UNK, ROA: INTRACARDIAC USE
  410. FOSAMAX [Suspect]
     Active Substance: ALENDRONATE SODIUM
     Dosage: UNK
  411. FOSAMAX [Suspect]
     Active Substance: ALENDRONATE SODIUM
     Dosage: UNK
     Route: 058
  412. FOSAMAX [Suspect]
     Active Substance: ALENDRONATE SODIUM
  413. FOSAMAX [Suspect]
     Active Substance: ALENDRONATE SODIUM
     Dosage: UNK, ROA: INTRACARDIAC
  414. FOSAMAX [Suspect]
     Active Substance: ALENDRONATE SODIUM
  415. FOSAMAX [Suspect]
     Active Substance: ALENDRONATE SODIUM
     Dosage: UNK
  416. FOSAMAX [Suspect]
     Active Substance: ALENDRONATE SODIUM
     Dosage: UNK
  417. FOSAMAX [Suspect]
     Active Substance: ALENDRONATE SODIUM
     Dosage: UNK
  418. FOSAMAX [Suspect]
     Active Substance: ALENDRONATE SODIUM
     Dosage: UNK
  419. CETIRIZINE HYDROCHLORIDE [Suspect]
     Active Substance: CETIRIZINE HYDROCHLORIDE
     Indication: Rheumatoid arthritis
     Dosage: 10 MG PATIENT ROA: UNKNOWN
  420. CETIRIZINE HYDROCHLORIDE [Suspect]
     Active Substance: CETIRIZINE HYDROCHLORIDE
     Dosage: 25 MG PATIENT ROA: UNKNOWN
  421. CETIRIZINE HYDROCHLORIDE [Suspect]
     Active Substance: CETIRIZINE HYDROCHLORIDE
     Dosage: 10 MG PATIENT ROA: UNKNOWN
  422. CETIRIZINE HYDROCHLORIDE [Suspect]
     Active Substance: CETIRIZINE HYDROCHLORIDE
     Dosage: 25 MG
  423. CETIRIZINE HYDROCHLORIDE [Suspect]
     Active Substance: CETIRIZINE HYDROCHLORIDE
     Dosage: 10 MILLIGRAM
  424. CETIRIZINE HYDROCHLORIDE [Suspect]
     Active Substance: CETIRIZINE HYDROCHLORIDE
  425. CETIRIZINE HYDROCHLORIDE [Suspect]
     Active Substance: CETIRIZINE HYDROCHLORIDE
     Dosage: 25 MG PATIENT ROA: UNKNOWN
     Route: 050
  426. CETIRIZINE HYDROCHLORIDE [Suspect]
     Active Substance: CETIRIZINE HYDROCHLORIDE
  427. CETIRIZINE HYDROCHLORIDE [Suspect]
     Active Substance: CETIRIZINE HYDROCHLORIDE
  428. CETIRIZINE HYDROCHLORIDE [Suspect]
     Active Substance: CETIRIZINE HYDROCHLORIDE
     Dosage: UNK
  429. CETIRIZINE HYDROCHLORIDE [Suspect]
     Active Substance: CETIRIZINE HYDROCHLORIDE
  430. CETIRIZINE HYDROCHLORIDE [Suspect]
     Active Substance: CETIRIZINE HYDROCHLORIDE
     Dosage: 10 MG
  431. CETIRIZINE HYDROCHLORIDE [Suspect]
     Active Substance: CETIRIZINE HYDROCHLORIDE
     Dosage: UNK
  432. CETIRIZINE HYDROCHLORIDE [Suspect]
     Active Substance: CETIRIZINE HYDROCHLORIDE
     Dosage: 10 MG
  433. CETIRIZINE HYDROCHLORIDE [Suspect]
     Active Substance: CETIRIZINE HYDROCHLORIDE
     Dosage: UNK, INTRACARDIAC USE
  434. CETIRIZINE HYDROCHLORIDE [Suspect]
     Active Substance: CETIRIZINE HYDROCHLORIDE
     Dosage: 10 MG
     Route: 050
  435. CETIRIZINE HYDROCHLORIDE [Suspect]
     Active Substance: CETIRIZINE HYDROCHLORIDE
  436. CETIRIZINE HYDROCHLORIDE [Suspect]
     Active Substance: CETIRIZINE HYDROCHLORIDE
     Dosage: 10 MG PATIENT ROA: UNKNOWN
  437. CETIRIZINE HYDROCHLORIDE [Suspect]
     Active Substance: CETIRIZINE HYDROCHLORIDE
     Dosage: 10 MG
     Route: 050
  438. CETIRIZINE HYDROCHLORIDE [Suspect]
     Active Substance: CETIRIZINE HYDROCHLORIDE
     Dosage: 25 MG PATIENT ROA: UNKNOWN
     Route: 050
  439. CETIRIZINE HYDROCHLORIDE [Suspect]
     Active Substance: CETIRIZINE HYDROCHLORIDE
     Dosage: 25 MILLIGRAM
  440. CETIRIZINE HYDROCHLORIDE [Suspect]
     Active Substance: CETIRIZINE HYDROCHLORIDE
     Dosage: 10 MILLIGRAM
  441. CETIRIZINE HYDROCHLORIDE [Suspect]
     Active Substance: CETIRIZINE HYDROCHLORIDE
     Dosage: UNK
  442. CETIRIZINE HYDROCHLORIDE [Suspect]
     Active Substance: CETIRIZINE HYDROCHLORIDE
     Dosage: UNK
  443. CIMZIA [Suspect]
     Active Substance: CERTOLIZUMAB PEGOL
     Indication: Rheumatoid arthritis
  444. CIMZIA [Suspect]
     Active Substance: CERTOLIZUMAB PEGOL
     Indication: Psoriasis
     Dosage: UNK
  445. CIMZIA [Suspect]
     Active Substance: CERTOLIZUMAB PEGOL
     Dosage: UNK PATIENT ROA: UNKNOWN
  446. CIMZIA [Suspect]
     Active Substance: CERTOLIZUMAB PEGOL
     Dosage: 400 MG
     Route: 050
  447. CIMZIA [Suspect]
     Active Substance: CERTOLIZUMAB PEGOL
  448. CIMZIA [Suspect]
     Active Substance: CERTOLIZUMAB PEGOL
     Dosage: 400 MG
     Route: 050
  449. CIMZIA [Suspect]
     Active Substance: CERTOLIZUMAB PEGOL
     Dosage: UNK
     Route: 050
  450. CIMZIA [Suspect]
     Active Substance: CERTOLIZUMAB PEGOL
     Dosage: UNK
     Route: 050
  451. CIMZIA [Suspect]
     Active Substance: CERTOLIZUMAB PEGOL
  452. CIMZIA [Suspect]
     Active Substance: CERTOLIZUMAB PEGOL
     Dosage: 200 MG
     Route: 050
  453. CIMZIA [Suspect]
     Active Substance: CERTOLIZUMAB PEGOL
  454. CIMZIA [Suspect]
     Active Substance: CERTOLIZUMAB PEGOL
     Dosage: 200 MG, SOLUTION FOR INJECTION IN PRE-FILLED SYRINGE
     Route: 058
  455. CIMZIA [Suspect]
     Active Substance: CERTOLIZUMAB PEGOL
     Dosage: 400 MG, SOLUTION FOR INJECTION IN PRE-FILLED SYRINGE
     Route: 058
  456. CIMZIA [Suspect]
     Active Substance: CERTOLIZUMAB PEGOL
     Dosage: UNK
  457. CIMZIA [Suspect]
     Active Substance: CERTOLIZUMAB PEGOL
     Dosage: UNK
  458. CIMZIA [Suspect]
     Active Substance: CERTOLIZUMAB PEGOL
     Dosage: UNK
  459. CIMZIA [Suspect]
     Active Substance: CERTOLIZUMAB PEGOL
     Dosage: UNK
  460. CIMZIA [Suspect]
     Active Substance: CERTOLIZUMAB PEGOL
     Dosage: UNK
  461. SULFASALAZINE [Suspect]
     Active Substance: SULFASALAZINE
     Indication: Rheumatoid arthritis
     Dosage: UNK 4 MONTHS
  462. SULFASALAZINE [Suspect]
     Active Substance: SULFASALAZINE
     Dosage: UNK PATIENT ROA: UNKNOWN
  463. SIMPONI [Suspect]
     Active Substance: GOLIMUMAB
     Indication: Rheumatoid arthritis
     Dosage: 50 MG, SOLUTION SUBCUTANEOUS, DOSE FORM: SOLUTION
  464. SIMPONI [Suspect]
     Active Substance: GOLIMUMAB
     Dosage: UNK, SOLUTION SUBCUTANEOUS
  465. SIMPONI [Suspect]
     Active Substance: GOLIMUMAB
     Dosage: UNK SOLUTION SUBCUTANEOUS USE
  466. SIMPONI [Suspect]
     Active Substance: GOLIMUMAB
     Dosage: UNK, DOSE FORM: SOLUTION
     Route: 058
  467. SIMPONI [Suspect]
     Active Substance: GOLIMUMAB
  468. SIMPONI [Suspect]
     Active Substance: GOLIMUMAB
     Dosage: UNK, DOSE FORM: SOLUTION
  469. SIMPONI [Suspect]
     Active Substance: GOLIMUMAB
     Dosage: UNK
  470. SIMPONI [Suspect]
     Active Substance: GOLIMUMAB
     Dosage: UNK, DOSE FORM: SOLUTION
  471. SIMPONI [Suspect]
     Active Substance: GOLIMUMAB
     Dosage: UNK, DOSE FORM: SOLUTION
     Route: 050
  472. SIRUKUMAB [Suspect]
     Active Substance: SIRUKUMAB
     Indication: Product used for unknown indication
  473. SIRUKUMAB [Suspect]
     Active Substance: SIRUKUMAB
     Dosage: UNK
  474. SIRUKUMAB [Suspect]
     Active Substance: SIRUKUMAB
     Dosage: UNK PATIENT ROA: UNKNOWN
  475. SIRUKUMAB [Suspect]
     Active Substance: SIRUKUMAB
     Dosage: UNK
  476. GOLD SODIUM THIOMALATE [Suspect]
     Active Substance: GOLD SODIUM THIOMALATE
     Indication: Product used for unknown indication
     Dosage: UNK ORAL USE
     Route: 048
  477. GOLD SODIUM THIOMALATE [Suspect]
     Active Substance: GOLD SODIUM THIOMALATE
     Dosage: UNK
  478. GOLD SODIUM THIOMALATE [Suspect]
     Active Substance: GOLD SODIUM THIOMALATE
  479. GOLD SODIUM THIOMALATE [Suspect]
     Active Substance: GOLD SODIUM THIOMALATE
     Dosage: UNK
     Route: 050
  480. SULFASALAZINE [Suspect]
     Active Substance: SULFASALAZINE
     Indication: Rheumatoid arthritis
     Dosage: UNK ORAL
  481. SULFASALAZINE [Suspect]
     Active Substance: SULFASALAZINE
     Dosage: 2 DOSAGE FORM, QD ORAL
     Route: 050
  482. SULFASALAZINE [Suspect]
     Active Substance: SULFASALAZINE
     Dosage: 1000 MG, QD ORAL
     Route: 050
  483. SULFASALAZINE [Suspect]
     Active Substance: SULFASALAZINE
     Dosage: UNK ORAL
  484. SULFASALAZINE [Suspect]
     Active Substance: SULFASALAZINE
     Dosage: 2 G, QD UNKNOWN
  485. SULFASALAZINE [Suspect]
     Active Substance: SULFASALAZINE
     Dosage: UNK
     Route: 050
  486. SULFASALAZINE [Suspect]
     Active Substance: SULFASALAZINE
     Dosage: UNK PATIENT ROA: UNKNOWN
  487. SULFASALAZINE [Suspect]
     Active Substance: SULFASALAZINE
     Dosage: UNK, ROA: INTRACARDIAC USE
  488. SULFASALAZINE [Suspect]
     Active Substance: SULFASALAZINE
  489. SULFASALAZINE [Suspect]
     Active Substance: SULFASALAZINE
     Dosage: 10 MG PATIENT ROA: UNKNOWN
  490. SULFASALAZINE [Suspect]
     Active Substance: SULFASALAZINE
     Dosage: 500 MG SUBCUTANEOUS
     Route: 050
  491. SULFASALAZINE [Suspect]
     Active Substance: SULFASALAZINE
     Dosage: 1 G SUBCUTANEOUS
     Route: 050
  492. SULFASALAZINE [Suspect]
     Active Substance: SULFASALAZINE
     Dosage: 4 MG, QD SUBCUTANEOUS
     Route: 050
  493. SULFASALAZINE [Suspect]
     Active Substance: SULFASALAZINE
     Dosage: 1 MG UNKNOWN
  494. SULFASALAZINE [Suspect]
     Active Substance: SULFASALAZINE
     Dosage: 500 MG
     Route: 050
  495. SULFASALAZINE [Suspect]
     Active Substance: SULFASALAZINE
     Dosage: UNK INTRACARDIAC USE
  496. SULFASALAZINE [Suspect]
     Active Substance: SULFASALAZINE
     Dosage: UNK
  497. SULFASALAZINE [Suspect]
     Active Substance: SULFASALAZINE
  498. SULFASALAZINE [Suspect]
     Active Substance: SULFASALAZINE
     Dosage: 100 MG ORAL
     Route: 050
  499. SULFASALAZINE [Suspect]
     Active Substance: SULFASALAZINE
     Dosage: UNK
  500. SULFASALAZINE [Suspect]
     Active Substance: SULFASALAZINE
  501. SULFASALAZINE [Suspect]
     Active Substance: SULFASALAZINE
     Dosage: UNK
  502. SULFASALAZINE [Suspect]
     Active Substance: SULFASALAZINE
  503. SULFASALAZINE [Suspect]
     Active Substance: SULFASALAZINE
     Dosage: 300 MG, QD UNKNOWN
  504. SULFASALAZINE [Suspect]
     Active Substance: SULFASALAZINE
     Dosage: UNK
     Route: 050
  505. SULFASALAZINE [Suspect]
     Active Substance: SULFASALAZINE
  506. SULFASALAZINE [Suspect]
     Active Substance: SULFASALAZINE
     Dosage: 1 DOSAGE FORM ORAL
     Route: 050
  507. SULFASALAZINE [Suspect]
     Active Substance: SULFASALAZINE
     Dosage: 2 DOSAGE FORM, QD
     Route: 050
  508. SULFASALAZINE [Suspect]
     Active Substance: SULFASALAZINE
     Dosage: UNK
  509. SULFASALAZINE [Suspect]
     Active Substance: SULFASALAZINE
     Dosage: 1 MILLIGRAM
  510. SULFASALAZINE [Suspect]
     Active Substance: SULFASALAZINE
     Dosage: UNK INTRACARDIAC
  511. SULFASALAZINE [Suspect]
     Active Substance: SULFASALAZINE
     Dosage: 300 MG, QD
  512. SULFASALAZINE [Suspect]
     Active Substance: SULFASALAZINE
     Dosage: UNK
     Route: 050
  513. SULFASALAZINE [Suspect]
     Active Substance: SULFASALAZINE
     Dosage: UNK
  514. SULFASALAZINE [Suspect]
     Active Substance: SULFASALAZINE
     Dosage: UNK
  515. SULFASALAZINE [Suspect]
     Active Substance: SULFASALAZINE
     Dosage: 2000 MILLIGRAM, QD
     Route: 050
  516. SULFASALAZINE [Suspect]
     Active Substance: SULFASALAZINE
  517. CHLORHEXIDINE GLUCONATE [Suspect]
     Active Substance: CHLORHEXIDINE GLUCONATE
     Indication: Product used for unknown indication
     Dosage: UNK
  518. CHLORHEXIDINE GLUCONATE [Suspect]
     Active Substance: CHLORHEXIDINE GLUCONATE
     Dosage: UNK
  519. CHLORHEXIDINE GLUCONATE [Suspect]
     Active Substance: CHLORHEXIDINE GLUCONATE
     Dosage: UNK UNKNOWN
  520. VITAMIN D3 [Suspect]
     Active Substance: CHOLECALCIFEROL
     Indication: Product used for unknown indication
     Dosage: UNK
  521. PHENYLEPHRINE HYDROCHLORIDE [Suspect]
     Active Substance: PHENYLEPHRINE HYDROCHLORIDE
     Indication: Rheumatoid arthritis
     Dosage: 10 MG PATIENT ROA: UNKNOWN
  522. RITUXIMAB [Suspect]
     Active Substance: RITUXIMAB
     Indication: Rheumatoid arthritis
     Dosage: 2000 MG, QD PATIENT ROA: UNKNOWN
  523. RITUXIMAB [Suspect]
     Active Substance: RITUXIMAB
     Dosage: 2000 MG, QD PATIENT ROA: UNKNOWN
  524. RITUXIMAB [Suspect]
     Active Substance: RITUXIMAB
     Dosage: UNK, ROA: INTRACARDIAC USE
  525. RITUXIMAB [Suspect]
     Active Substance: RITUXIMAB
     Dosage: UNK PATIENT ROA: INTRAVENOUS BOLUS
  526. RITUXIMAB [Suspect]
     Active Substance: RITUXIMAB
     Dosage: UNK,
  527. RITUXIMAB [Suspect]
     Active Substance: RITUXIMAB
     Dosage: UNK PATIENT ROA: INTRACARDIAC
  528. RITUXIMAB [Suspect]
     Active Substance: RITUXIMAB
     Dosage: UNK, ROA: INTRACARDIAC USE
  529. RITUXIMAB [Suspect]
     Active Substance: RITUXIMAB
     Dosage: UNK PATIENT ROA: INTRAVENOUS BOLUS
  530. RITUXIMAB [Suspect]
     Active Substance: RITUXIMAB
     Dosage: UNK, ROA: INTRACARDIAC USE
  531. RITUXIMAB [Suspect]
     Active Substance: RITUXIMAB
     Dosage: UNK PATIENT ROA: INTRAVESICAL
  532. RITUXIMAB [Suspect]
     Active Substance: RITUXIMAB
     Dosage: 2000 MG, QD PATIENT ROA: UNKNOWN
  533. RITUXIMAB [Suspect]
     Active Substance: RITUXIMAB
     Dosage: UNK, ROA: INTRAVESICAL USE
  534. RITUXIMAB [Suspect]
     Active Substance: RITUXIMAB
     Dosage: UNK PATIENT ROA: INTRACARDIAC USE
  535. RITUXIMAB [Suspect]
     Active Substance: RITUXIMAB
     Dosage: UNK, ROA: INTRAVENOUS BOLUS
  536. RITUXIMAB [Suspect]
     Active Substance: RITUXIMAB
     Dosage: UNK, INTRAVENOUS BOLUS
  537. RITUXIMAB [Suspect]
     Active Substance: RITUXIMAB
     Dosage: UNK, ROA: INTRAVENOUS BOLUS
  538. RITUXIMAB [Suspect]
     Active Substance: RITUXIMAB
     Dosage: UNK PATIENT ROA: INTRACARDIAC USE
  539. RITUXIMAB [Suspect]
     Active Substance: RITUXIMAB
     Dosage: UNK PATIENT ROA: SUBCUTANEOUS USE
  540. RITUXIMAB [Suspect]
     Active Substance: RITUXIMAB
     Dosage: UNK PATIENT ROA: INTRAVENOUS BOLUS
  541. RITUXIMAB [Suspect]
     Active Substance: RITUXIMAB
     Dosage: UNK PATIENT ROA: INTRAVESICAL
  542. RITUXIMAB [Suspect]
     Active Substance: RITUXIMAB
     Dosage: 2 G, QD (2 G, QD INTRAVENOUS BOLUS) PATIENT ROA: INTRAVENOUS BOLUS
  543. RITUXIMAB [Suspect]
     Active Substance: RITUXIMAB
     Dosage: UNK PATIENT ROA: INTRAVESICAL USE
  544. RITUXIMAB [Suspect]
     Active Substance: RITUXIMAB
     Dosage: UNK PATIENT ROA: INTRACARDIAC
  545. RITUXIMAB [Suspect]
     Active Substance: RITUXIMAB
     Dosage: UNK PATIENT ROA: INTRAVESICAL USE
  546. RITUXIMAB [Suspect]
     Active Substance: RITUXIMAB
     Dosage: UNK
  547. RITUXIMAB [Suspect]
     Active Substance: RITUXIMAB
     Dosage: UNK, INTRAVENOUS BOLUS
  548. RITUXIMAB [Suspect]
     Active Substance: RITUXIMAB
     Dosage: 2 G, QD (2 G, QD INTRAVENOUS BOLUS) PATIENT ROA: INTRAVENOUS BOLUS
  549. RITUXIMAB [Suspect]
     Active Substance: RITUXIMAB
     Dosage: 2000 MG, QD PATIENT ROA: UNKNOWN
  550. RITUXIMAB [Suspect]
     Active Substance: RITUXIMAB
     Dosage: UNK
  551. RITUXIMAB [Suspect]
     Active Substance: RITUXIMAB
     Dosage: UNK, (INTRAVENOUS BOLUS)
  552. RITUXIMAB [Suspect]
     Active Substance: RITUXIMAB
     Dosage: UNK
  553. RITUXIMAB [Suspect]
     Active Substance: RITUXIMAB
     Dosage: 2000 MG, QD PATIENT ROA: UNKNOWN
  554. RITUXIMAB [Suspect]
     Active Substance: RITUXIMAB
     Dosage: 365 MG, QD PATIENT ROA: UNKNOWN
  555. RITUXIMAB [Suspect]
     Active Substance: RITUXIMAB
     Dosage: UNK
  556. RITUXIMAB [Suspect]
     Active Substance: RITUXIMAB
     Dosage: UNK
  557. RITUXIMAB [Suspect]
     Active Substance: RITUXIMAB
     Dosage: UNK
  558. RITUXIMAB [Suspect]
     Active Substance: RITUXIMAB
     Dosage: UNK
  559. RITUXIMAB [Suspect]
     Active Substance: RITUXIMAB
     Dosage: UNK (INTRAVENOUS BOLUS)
  560. RITUXIMAB [Suspect]
     Active Substance: RITUXIMAB
     Dosage: UNK
  561. RITUXIMAB [Suspect]
     Active Substance: RITUXIMAB
     Dosage: UNK
  562. RITUXIMAB [Suspect]
     Active Substance: RITUXIMAB
     Dosage: UNK PATIENT ROA: INTRACARDIAC USE
  563. RITUXIMAB [Suspect]
     Active Substance: RITUXIMAB
     Dosage: UNK
  564. RITUXIMAB [Suspect]
     Active Substance: RITUXIMAB
     Dosage: UNK
     Route: 050
  565. RITUXIMAB [Suspect]
     Active Substance: RITUXIMAB
     Dosage: UNK PATIENT ROA: SUBCUTANEOUS USE
  566. RITUXIMAB [Suspect]
     Active Substance: RITUXIMAB
     Dosage: UNK, ROA: INTRAVESICAL USE
  567. RITUXIMAB [Suspect]
     Active Substance: RITUXIMAB
     Dosage: UNK PATIENT ROA: INTRACARDIAC
  568. HYRIMOZ [Suspect]
     Active Substance: ADALIMUMAB-ADAZ
     Indication: Rheumatoid arthritis
     Dosage: 40 MG
     Route: 050
  569. HYRIMOZ [Suspect]
     Active Substance: ADALIMUMAB-ADAZ
     Indication: Product used for unknown indication
  570. AZATHIOPRINE [Suspect]
     Active Substance: AZATHIOPRINE
     Indication: Product used for unknown indication
     Dosage: UNK
  571. AZATHIOPRINE [Suspect]
     Active Substance: AZATHIOPRINE
  572. ACETAMINOPHEN [Suspect]
     Active Substance: ACETAMINOPHEN
     Indication: Product used for unknown indication

REACTIONS (35)
  - Hepatitis [Fatal]
  - Inflammation [Fatal]
  - Mobility decreased [Fatal]
  - Gastrointestinal disorder [Fatal]
  - Nail disorder [Fatal]
  - Pneumonia [Fatal]
  - Finger deformity [Fatal]
  - Off label use [Fatal]
  - Condition aggravated [Fatal]
  - Product label confusion [Fatal]
  - Headache [Fatal]
  - Bursitis [Fatal]
  - Wheezing [Fatal]
  - Weight increased [Fatal]
  - Folliculitis [Fatal]
  - Grip strength decreased [Fatal]
  - Injury [Fatal]
  - Neck pain [Fatal]
  - Musculoskeletal stiffness [Fatal]
  - Abdominal distension [Fatal]
  - Adverse reaction [Fatal]
  - Gait inability [Fatal]
  - Intentional product use issue [Fatal]
  - Insomnia [Fatal]
  - Pain in extremity [Fatal]
  - Back injury [Fatal]
  - Dyspepsia [Fatal]
  - Wound infection [Fatal]
  - Liver function test increased [Fatal]
  - Malaise [Fatal]
  - Fall [Fatal]
  - Hypoaesthesia [Fatal]
  - Muscular weakness [Fatal]
  - Coeliac disease [Fatal]
  - Gastrooesophageal reflux disease [Fatal]
